FAERS Safety Report 4594507-4 (Version None)
Quarter: 2005Q1

REPORT INFORMATION
  Report Type: 
  Country: None (occurrence: None)
  Receive Date: 20050301
  Receipt Date: 20040405
  Transmission Date: 20050727
  Serious: No
  Sender: FDA-Public Use
  Company Number: US-GLAXOSMITHKLINE-A0505931A

PATIENT
  Age: 63 Year
  Sex: Female

DRUGS (4)
  1. VALTREX [Suspect]
     Indication: HERPES ZOSTER
     Dosage: 1G PER DAY
     Route: 048
  2. MIRTAZAPINE [Concomitant]
  3. DOXITIN [Concomitant]
  4. SUPERPEPTIC ENZYME [Concomitant]

REACTIONS (3)
  - ERUCTATION [None]
  - FAECES HARD [None]
  - GASTROOESOPHAGEAL REFLUX DISEASE [None]
